FAERS Safety Report 12162594 (Version 1)
Quarter: 2016Q1

REPORT INFORMATION
  Report Type: Spontaneous
  Country: US (occurrence: None)
  Receive Date: 20160308
  Receipt Date: 20160308
  Transmission Date: 20160526
  Serious: Yes (Hospitalization)
  Sender: FDA-Public Use
  Company Number: None

PATIENT
  Age: 43 Year
  Sex: Male
  Weight: 148 kg

DRUGS (18)
  1. ATROVENT [Concomitant]
     Active Substance: IPRATROPIUM BROMIDE
  2. INDERAL [Concomitant]
     Active Substance: PROPRANOLOL HYDROCHLORIDE
  3. ALKA SELTZER [Concomitant]
     Active Substance: ANHYDROUS CITRIC ACID\ASPIRIN\SODIUM BICARBONATE
  4. FOLVITE [Concomitant]
     Active Substance: FOLIC ACID
  5. SUMATRIPTAN. [Concomitant]
     Active Substance: SUMATRIPTAN
  6. LACTULOSE. [Concomitant]
     Active Substance: LACTULOSE
  7. ROCEPHIN [Concomitant]
     Active Substance: CEFTRIAXONE SODIUM
  8. HARVONI [Suspect]
     Active Substance: LEDIPASVIR\SOFOSBUVIR
     Indication: HEPATITIS C
     Dosage: 90MG/400MG QD ORAL
     Route: 048
     Dates: start: 20150206, end: 20150724
  9. ALBUTEROL. [Concomitant]
     Active Substance: ALBUTEROL
  10. PRILOSEC [Concomitant]
     Active Substance: OMEPRAZOLE MAGNESIUM
  11. ALDACTONE [Concomitant]
     Active Substance: SPIRONOLACTONE
  12. VANCOMYCIN [Concomitant]
     Active Substance: VANCOMYCIN
  13. MULTIVITAMIN [Concomitant]
     Active Substance: VITAMINS
  14. OSCAL D [Concomitant]
     Active Substance: CALCIUM CARBONATE\CHOLECALCIFEROL
  15. NORCO [Concomitant]
     Active Substance: ACETAMINOPHEN\HYDROCODONE BITARTRATE
  16. LASIX [Concomitant]
     Active Substance: FUROSEMIDE
  17. ZOFRAN [Concomitant]
     Active Substance: ONDANSETRON HYDROCHLORIDE
  18. BACTRIM [Concomitant]
     Active Substance: SULFAMETHOXAZOLE\TRIMETHOPRIM

REACTIONS (1)
  - Cellulitis [None]

NARRATIVE: CASE EVENT DATE: 20150602
